FAERS Safety Report 13934645 (Version 1)
Quarter: 2017Q3

REPORT INFORMATION
  Report Type: Report from Study
  Country: FR (occurrence: FR)
  Receive Date: 20170905
  Receipt Date: 20170905
  Transmission Date: 20171127
  Serious: Yes (Death, Hospitalization, Other)
  Sender: FDA-Public Use
  Company Number: FR-TAKEDA-2017MPI007593

PATIENT
  Sex: Female
  Weight: 82 kg

DRUGS (7)
  1. DEXAMETHASONE. [Suspect]
     Active Substance: DEXAMETHASONE
     Indication: PRODUCT USED FOR UNKNOWN INDICATION
     Dosage: 20 MG, UNK
     Route: 042
     Dates: start: 20140711, end: 20140812
  2. BACTRIM [Concomitant]
     Active Substance: SULFAMETHOXAZOLE\TRIMETHOPRIM
     Indication: PROPHYLAXIS
     Dosage: 400 MG, UNK
     Route: 048
     Dates: start: 201407
  3. CYCLOPHOSPHAMIDE. [Suspect]
     Active Substance: CYCLOPHOSPHAMIDE
     Indication: PLASMA CELL MYELOMA
     Dosage: UNK
     Route: 048
     Dates: start: 20140822, end: 201412
  4. ZELITREX [Concomitant]
     Active Substance: VALACYCLOVIR HYDROCHLORIDE
     Indication: PROPHYLAXIS
     Dosage: UNK
     Route: 042
     Dates: start: 20140125
  5. EPREX [Concomitant]
     Active Substance: ERYTHROPOIETIN
     Dosage: UNK
     Route: 058
     Dates: start: 201409, end: 20150125
  6. FUROSEMIDE. [Concomitant]
     Active Substance: FUROSEMIDE
     Dosage: 1000 MG, UNK
     Route: 042
     Dates: start: 20141222, end: 20150119
  7. VELCADE [Suspect]
     Active Substance: BORTEZOMIB
     Indication: PRODUCT USED FOR UNKNOWN INDICATION
     Dosage: 2.18 MG, UNK
     Route: 058
     Dates: start: 20140711, end: 20140811

REACTIONS (2)
  - Gastrointestinal amyloidosis [Fatal]
  - Intestinal obstruction [Fatal]

NARRATIVE: CASE EVENT DATE: 20141229
